FAERS Safety Report 12206642 (Version 3)
Quarter: 2016Q3

REPORT INFORMATION
  Report Type: Report from Study
  Country: BE (occurrence: BE)
  Receive Date: 20160324
  Receipt Date: 20160731
  Transmission Date: 20161109
  Serious: Yes (Other)
  Sender: FDA-Public Use
  Company Number: BE-BEH-2016060482

PATIENT
  Sex: Male

DRUGS (1)
  1. HIZENTRA [Suspect]
     Active Substance: HUMAN IMMUNOGLOBULIN G
     Indication: PRODUCT USED FOR UNKNOWN INDICATION

REACTIONS (11)
  - Pulmonary congestion [Unknown]
  - Petit mal epilepsy [Unknown]
  - Diarrhoea haemorrhagic [Unknown]
  - Pain in extremity [Unknown]
  - Fatigue [Unknown]
  - Haemorrhage urinary tract [Unknown]
  - Dyspnoea [Unknown]
  - Diarrhoea [Unknown]
  - Loss of consciousness [Unknown]
  - Pneumonia [Unknown]
  - Weight decreased [Unknown]
